FAERS Safety Report 14199437 (Version 2)
Quarter: 2017Q4

REPORT INFORMATION
  Report Type: Other
  Country: CA (occurrence: CA)
  Receive Date: 20171117
  Receipt Date: 20171222
  Transmission Date: 20180321
  Serious: Yes (Disabling, Other)
  Sender: FDA-Public Use
  Company Number: CA-APOTEX-2017AP021232

PATIENT
  Age: 66 Year
  Sex: Female
  Weight: 106 kg

DRUGS (1)
  1. APO-DULOXETINE [Suspect]
     Active Substance: DULOXETINE
     Indication: PRODUCT USED FOR UNKNOWN INDICATION
     Dosage: 2 DF, QD
     Route: 065

REACTIONS (5)
  - Anxiety [Not Recovered/Not Resolved]
  - Product substitution issue [Not Recovered/Not Resolved]
  - Pain [Not Recovered/Not Resolved]
  - Drug ineffective [Not Recovered/Not Resolved]
  - Fibromyalgia [Not Recovered/Not Resolved]
